FAERS Safety Report 5192286-3 (Version None)
Quarter: 2006Q4

REPORT INFORMATION
  Report Type: 
  Country: None (occurrence: None)
  Receive Date: 20061227
  Receipt Date: 20061115
  Transmission Date: 20070319
  Serious: Yes (Death, Hospitalization, Other)
  Sender: FDA-Public Use
  Company Number: AR-ELI_LILLY_AND_COMPANY-AR200611003026

PATIENT
  Age: 80 Year
  Sex: Male

DRUGS (8)
  1. MIDAX [Suspect]
     Indication: DEMENTIA
     Dosage: 5 MG, DAILY (1/D)
     Dates: start: 20060710, end: 20060711
  2. MIDAX [Interacting]
     Dosage: 15 MG, DAILY (1/D)
     Dates: start: 20060711, end: 20060712
  3. MIDAX [Interacting]
     Dosage: 10 MG, DAILY (1/D)
     Dates: start: 20060712, end: 20060714
  4. VALIUM                                  /NET/ [Concomitant]
  5. ALPLAX [Concomitant]
  6. AMPLIACTIL [Concomitant]
  7. DORMICUM                                /AUS/ [Concomitant]
  8. PAROXETINE HCL [Concomitant]

REACTIONS (5)
  - ASPIRATION [None]
  - DRUG INTERACTION [None]
  - PULMONARY OEDEMA [None]
  - RESPIRATORY FAILURE [None]
  - SEDATION [None]
